FAERS Safety Report 22123800 (Version 1)
Quarter: 2023Q1

REPORT INFORMATION
  Report Type: Spontaneous
  Country: CN (occurrence: None)
  Receive Date: 20230322
  Receipt Date: 20230322
  Transmission Date: 20230418
  Serious: Yes (Disabling, Other)
  Sender: FDA-Public Use
  Company Number: CN-ROCHE-3313913

PATIENT
  Sex: Male
  Weight: 69 kg

DRUGS (3)
  1. HERCEPTIN [Suspect]
     Active Substance: TRASTUZUMAB
     Indication: Cardiac neoplasm malignant
     Route: 041
     Dates: start: 20230206
  2. XELODA [Suspect]
     Active Substance: CAPECITABINE
     Indication: Cardiac neoplasm malignant
     Route: 065
  3. OXALIPLATIN [Concomitant]
     Active Substance: OXALIPLATIN
     Indication: Cardiac neoplasm malignant

REACTIONS (2)
  - Onycholysis [Recovering/Resolving]
  - Myelosuppression [Unknown]

NARRATIVE: CASE EVENT DATE: 20230225
